FAERS Safety Report 6812192-5 (Version None)
Quarter: 2010Q3

REPORT INFORMATION
  Report Type: 
  Country: None (occurrence: None)
  Receive Date: 20100701
  Receipt Date: 20100628
  Transmission Date: 20110219
  Serious: Yes (Hospitalization)
  Sender: FDA-Public Use
  Company Number: KR-SANOFI-AVENTIS-2010SA009464

PATIENT
  Age: 47 Year
  Sex: Male
  Weight: 66.4 kg

DRUGS (23)
  1. AFLIBERCEPT [Suspect]
     Indication: NON-SMALL CELL LUNG CANCER METASTATIC
     Route: 042
     Dates: start: 20091003, end: 20091003
  2. AFLIBERCEPT [Suspect]
     Route: 042
     Dates: start: 20100127, end: 20100127
  3. AFLIBERCEPT [Suspect]
     Route: 042
     Dates: start: 20100219, end: 20100219
  4. AFLIBERCEPT [Suspect]
     Route: 042
     Dates: start: 20100604, end: 20100604
  5. DOCETAXEL [Suspect]
     Indication: NON-SMALL CELL LUNG CANCER METASTATIC
     Route: 042
     Dates: start: 20091013, end: 20091013
  6. DOCETAXEL [Suspect]
     Route: 042
     Dates: start: 20100127, end: 20100127
  7. DOCETAXEL [Suspect]
     Route: 042
     Dates: start: 20100219, end: 20100219
  8. DOCETAXEL [Suspect]
     Route: 042
     Dates: start: 20100604, end: 20100604
  9. CORTICOSTEROIDS [Concomitant]
  10. DEXAMETHASONE [Concomitant]
     Dates: start: 20091013, end: 20100422
  11. DIAZEPAM [Concomitant]
     Dates: start: 20091013, end: 20100421
  12. PHENIRAMINE [Concomitant]
     Dates: start: 20091013, end: 20100421
  13. TAGAMET [Concomitant]
     Dates: start: 20091013, end: 20100422
  14. OXYCODONE HCL [Concomitant]
     Dates: start: 20091013, end: 20100228
  15. CIPROFLOXACIN [Concomitant]
     Dates: start: 20091018, end: 20100321
  16. NEUPOGEN [Concomitant]
     Dates: start: 20091104, end: 20100422
  17. COUGH SYRUP [Concomitant]
     Dates: start: 20091215
  18. ALLEGRA D 24 HOUR [Concomitant]
     Dates: start: 20100106
  19. BETADINE ^PURDUE^ [Concomitant]
  20. BENZYDAMINE HYDROCHLORIDE [Concomitant]
  21. ALL OTHER THERAPEUTIC PRODUCTS [Concomitant]
     Dates: start: 20100311, end: 20100313
  22. MINOCYCLINE HYDROCHLORIDE [Concomitant]
     Dates: start: 20100311, end: 20100311
  23. ULTRACET [Concomitant]
     Dates: start: 20100219, end: 20100310

REACTIONS (1)
  - HYPERKALAEMIA [None]
